FAERS Safety Report 20480009 (Version 1)
Quarter: 2022Q1

REPORT INFORMATION
  Report Type: Spontaneous
  Country: CO (occurrence: CO)
  Receive Date: 20220216
  Receipt Date: 20220216
  Transmission Date: 20220424
  Serious: No
  Sender: FDA-Public Use
  Company Number: CO-PFIZER INC-2021534560

PATIENT

DRUGS (1)
  1. GENOTROPIN [Suspect]
     Active Substance: SOMATROPIN
     Dosage: UNK

REACTIONS (3)
  - Drug dose omission by device [Unknown]
  - Device failure [Unknown]
  - Device use error [Unknown]
